FAERS Safety Report 19546885 (Version 1)
Quarter: 2021Q3

REPORT INFORMATION
  Report Type: Spontaneous
  Country: US (occurrence: US)
  Receive Date: 20210714
  Receipt Date: 20210714
  Transmission Date: 20211014
  Serious: Yes (Hospitalization, Other)
  Sender: FDA-Public Use
  Company Number: US-GRANULES-US-2021GRALIT00407

PATIENT
  Age: 38 Year
  Sex: Male

DRUGS (2)
  1. ACETAMINOPHEN. [Suspect]
     Active Substance: ACETAMINOPHEN
     Indication: PRODUCT USED FOR UNKNOWN INDICATION
     Dosage: 200 TABLETS
     Route: 065
  2. ACETYLCYSTEINE. [Interacting]
     Active Substance: ACETYLCYSTEINE
     Indication: SUPPORTIVE CARE
     Route: 065

REACTIONS (7)
  - Nausea [Unknown]
  - Haemolytic anaemia [Unknown]
  - Methaemoglobinaemia [Unknown]
  - Leukocytosis [Unknown]
  - Intentional overdose [Unknown]
  - Urine output decreased [Recovered/Resolved]
  - Toxicity to various agents [Unknown]
